FAERS Safety Report 9960715 (Version 1)
Quarter: 2014Q1

REPORT INFORMATION
  Report Type: Spontaneous
  Country: US (occurrence: None)
  Receive Date: 20140304
  Receipt Date: 20140304
  Transmission Date: 20141002
  Serious: Yes (Other)
  Sender: FDA-Public Use
  Company Number: None

PATIENT
  Age: 70 Year
  Sex: Male

DRUGS (1)
  1. LEVETIRACETAM [Suspect]
     Route: 048
     Dates: start: 20121211, end: 20140223

REACTIONS (1)
  - Hypoaesthesia [None]
